FAERS Safety Report 6572686-7 (Version None)
Quarter: 2010Q1

REPORT INFORMATION
  Report Type: 
  Country: None (occurrence: None)
  Receive Date: 20100205
  Receipt Date: 20100125
  Transmission Date: 20100710
  Serious: Yes (Death)
  Sender: FDA-Public Use
  Company Number: US-JNJFOC-20100201682

PATIENT
  Age: 5 Year
  Sex: Female
  Weight: 15.42 kg

DRUGS (6)
  1. TYLENOL W/ CODEINE [Suspect]
     Indication: OROPHARYNGEAL PAIN
     Dosage: ACETAMINOPHEN 120 MG/5 ML AND CODEINE 12 MG/5 ML
     Route: 048
  2. OXYCODONE HCL [Suspect]
     Indication: DRUG USE FOR UNKNOWN INDICATION
  3. BACTRIM [Concomitant]
  4. ZINACEF [Concomitant]
  5. LACTULOSE [Concomitant]
  6. PHENERGAN EXPECTORANT W/ CODEINE [Concomitant]

REACTIONS (4)
  - ASTHENIA [None]
  - CARDIAC ARREST [None]
  - RESPIRATORY ARREST [None]
  - TOXICOLOGIC TEST ABNORMAL [None]
